FAERS Safety Report 5733594-4 (Version None)
Quarter: 2008Q2

REPORT INFORMATION
  Report Type: 
  Country: None (occurrence: None)
  Receive Date: 20080509
  Receipt Date: 20080502
  Transmission Date: 20081010
  Serious: Yes (Death)
  Sender: FDA-Public Use
  Company Number: GB-ELI_LILLY_AND_COMPANY-GB200804006492

PATIENT
  Sex: Male
  Weight: 95 kg

DRUGS (18)
  1. XIGRIS [Suspect]
     Indication: TOXIC SHOCK SYNDROME STREPTOCOCCAL
     Dosage: UNK, STANDARD DOSE
     Route: 042
     Dates: start: 20080422, end: 20080424
  2. FLOXACILLIN SODIUM [Concomitant]
     Dosage: 2 G, EVERY 4 HRS
     Route: 048
     Dates: start: 20080421
  3. BENZYLPENICILLIN [Concomitant]
     Dosage: 2.4 G, EVERY 6 HRS
     Route: 042
     Dates: start: 20080421
  4. BENZYLPENICILLIN [Concomitant]
     Dosage: 2.4 G, EVERY 4 HRS
     Route: 042
  5. CLINDAMYCIN [Concomitant]
     Dosage: 600 MG INITIALLY
     Dates: start: 20080421
  6. CLINDAMYCIN [Concomitant]
     Dosage: 2.4 G, EVERY 6 HRS
     Route: 042
  7. CLINDAMYCIN [Concomitant]
     Dosage: 1.2 G, EVERY 6 HRS
     Route: 042
     Dates: start: 20080423
  8. CLINDAMYCIN [Concomitant]
     Dosage: 2.4 G, EVERY 6 HRS
     Route: 042
  9. ACETAMINOPHEN [Concomitant]
     Dosage: 1 G, EVERY 6 HRS
     Route: 042
  10. METOCLOPRAMIDE [Concomitant]
     Dosage: 10 MG, IMMEDIATELY
     Route: 042
  11. RANITIDINE [Concomitant]
     Dosage: 50 MG, 3/D
     Route: 042
  12. NORADRENALINE [Concomitant]
     Indication: SEPTIC SHOCK
     Dosage: UNK, UNKNOWN
     Route: 042
  13. HYDROCORTISONE [Concomitant]
     Dosage: 100 MG, EVERY 8 HRS
     Route: 042
     Dates: start: 20080421
  14. PROPOFOL [Concomitant]
     Dosage: UNK, UNKNOWN
     Route: 042
  15. FENTANYL-100 [Concomitant]
     Dosage: UNK, UNKNOWN
     Route: 042
  16. NORMAL HUMAN IMMUNOGLOBULIN [Concomitant]
     Dosage: 2000 MG/KG, UNKNOWN
     Route: 042
     Dates: start: 20080421
  17. ENOXAPARIN SODIUM [Concomitant]
     Dosage: 40 MG, ONE DOSE
     Route: 058
     Dates: start: 20080424, end: 20080424
  18. MEROPENEM [Concomitant]
     Dosage: 2 G, EVERY 8 HRS
     Route: 065
     Dates: start: 20080424

REACTIONS (3)
  - PULMONARY HAEMORRHAGE [None]
  - PULMONARY OEDEMA [None]
  - TOXIC SHOCK SYNDROME [None]
